FAERS Safety Report 9770983 (Version 2)
Quarter: 2013Q4

REPORT INFORMATION
  Report Type: Spontaneous
  Country: US (occurrence: US)
  Receive Date: 20131218
  Receipt Date: 20131218
  Transmission Date: 20140711
  Serious: No
  Sender: FDA-Public Use
  Company Number: US-MYLANLABS-2012S1025633

PATIENT
  Age: 45 Year
  Sex: Female
  Weight: 50 kg

DRUGS (2)
  1. ROCURONIUM BROMIDE INJECTION [Suspect]
     Indication: SEDATION
     Route: 042
     Dates: start: 20121114, end: 20121114
  2. GENTAMICIN [Concomitant]
     Indication: PROPHYLAXIS
     Route: 041
     Dates: start: 20121114, end: 20121114

REACTIONS (2)
  - Drug effect decreased [Recovered/Resolved]
  - Anaesthetic complication [Recovered/Resolved]
